FAERS Safety Report 4960900-0 (Version None)
Quarter: 2006Q1

REPORT INFORMATION
  Report Type: 
  Country: None (occurrence: None)
  Receive Date: 20060328
  Receipt Date: 20060313
  Transmission Date: 20060701
  Serious: Yes (Hospitalization)
  Sender: FDA-Public Use
  Company Number: 2006035360

PATIENT
  Age: 43 Year
  Sex: Female

DRUGS (1)
  1. ZIPRASIDONE HCL [Suspect]
     Indication: SCHIZOPHRENIA, PARANOID TYPE
     Dosage: 120 MG (60 MG, BID INTERVAL:  EVERY DAY), ORAL
     Route: 048
     Dates: start: 20060304, end: 20060306

REACTIONS (2)
  - COMA [None]
  - HAEMODYNAMIC INSTABILITY [None]
